FAERS Safety Report 8572370-4 (Version None)
Quarter: 2012Q2

REPORT INFORMATION
  Report Type: 
  Country: None (occurrence: None)
  Receive Date: 20120419
  Receipt Date: 20120419
  Transmission Date: 20120825
  Serious: Yes (Hospitalization)
  Sender: FDA-Public Use
  Company Number: ALL1-2011-04071

PATIENT
  Age: 28 Year
  Sex: Male
  Weight: 68 kg

DRUGS (2)
  1. PREDNISONE TAB [Concomitant]
  2. LIALDA [Suspect]
     Indication: COLITIS ULCERATIVE
     Dosage: 4.8 G 1X/DAY:QD, ORAL
     Route: 048
     Dates: start: 20110930, end: 20111009

REACTIONS (1)
  - MYOCARDITIS [None]
